FAERS Safety Report 5700311-3 (Version None)
Quarter: 2008Q2

REPORT INFORMATION
  Report Type: 
  Country: None (occurrence: None)
  Receive Date: 20080410
  Receipt Date: 20080407
  Transmission Date: 20081010
  Serious: Yes (Life-Threatening, Hospitalization)
  Sender: FDA-Public Use
  Company Number: B0506694A

PATIENT
  Age: 38 Year
  Sex: Female

DRUGS (8)
  1. LAMICTAL [Suspect]
     Indication: DRUG USE FOR UNKNOWN INDICATION
     Dosage: 25MG FOUR TIMES PER DAY
     Route: 065
     Dates: start: 20071218, end: 20080105
  2. QUETIAPINE FUMARATE [Concomitant]
     Indication: SCHIZOPHRENIA
     Dosage: 200MG THREE TIMES PER DAY
     Route: 065
  3. CLONAZEPAM [Concomitant]
     Dosage: .5MG AT NIGHT
     Route: 065
  4. ATORVASTATIN [Concomitant]
     Dosage: 20MG PER DAY
     Route: 065
  5. LEVOTHYROXINE SODIUM [Concomitant]
     Dosage: 100MCG PER DAY
     Route: 065
  6. LACTULOSE [Concomitant]
     Route: 065
  7. GAVISCON [Concomitant]
     Route: 065
  8. CLOMIPRAMINE HCL [Concomitant]
     Indication: DEPRESSION
     Dosage: 100MG AT NIGHT
     Route: 065

REACTIONS (4)
  - AUTOIMMUNE THROMBOCYTOPENIA [None]
  - IDIOPATHIC THROMBOCYTOPENIC PURPURA [None]
  - PLATELET COUNT DECREASED [None]
  - PURPURA [None]
